FAERS Safety Report 9360871 (Version 2)
Quarter: 2013Q3

REPORT INFORMATION
  Report Type: Report from Study
  Country: BR (occurrence: BR)
  Receive Date: 20130621
  Receipt Date: 20130715
  Transmission Date: 20140515
  Serious: Yes (Death, Hospitalization, Disabling)
  Sender: FDA-Public Use
  Company Number: BR-ABBOTT-13P-020-1105215-00

PATIENT
  Age: 55 Year
  Sex: Female

DRUGS (1)
  1. HUMIRA [Suspect]
     Indication: RHEUMATOID ARTHRITIS
     Route: 058
     Dates: start: 20130509

REACTIONS (5)
  - Death [Fatal]
  - Lung neoplasm malignant [Fatal]
  - Spinal pain [Unknown]
  - Abasia [Unknown]
  - Movement disorder [Unknown]
